FAERS Safety Report 7352703-7 (Version None)
Quarter: 2011Q1

REPORT INFORMATION
  Report Type: 
  Country: None (occurrence: None)
  Receive Date: 20110310
  Receipt Date: 20110310
  Transmission Date: 20110831
  Serious: Yes (Life-Threatening, Disabling, Other)
  Sender: FDA-Public Use
  Company Number: None

PATIENT
  Age: 53 Year
  Sex: Male
  Weight: 122.4712 kg

DRUGS (1)
  1. LYRICA [Suspect]
     Indication: NEUROPATHY PERIPHERAL
     Dosage: 300 MG 2 X PER DAY DAILY PO
     Route: 048
     Dates: start: 20080301

REACTIONS (3)
  - IRON DEFICIENCY ANAEMIA [None]
  - ASTHMA [None]
  - SLEEP DISORDER [None]
